FAERS Safety Report 6653222-3 (Version None)
Quarter: 2010Q1

REPORT INFORMATION
  Report Type: 
  Country: None (occurrence: None)
  Receive Date: 20100326
  Receipt Date: 20100317
  Transmission Date: 20100710
  Serious: Yes (Hospitalization, Other)
  Sender: FDA-Public Use
  Company Number: JP-BRISTOL-MYERS SQUIBB COMPANY-15030323

PATIENT
  Age: 78 Year
  Sex: Male
  Weight: 54 kg

DRUGS (7)
  1. SPRYCEL [Suspect]
     Indication: ACUTE LYMPHOCYTIC LEUKAEMIA
     Dosage: 2DEC09-29JAN10:50X2MG/D 09FEB10-ONG:20X1MG/D
     Route: 048
     Dates: start: 20091202
  2. METOCLOPRAMIDE [Concomitant]
     Indication: PROPHYLAXIS
     Route: 048
     Dates: start: 20091202
  3. SULFAMETHOXAZOLE AND TRIMETHOPRIM [Concomitant]
     Indication: INFECTION PROPHYLAXIS
     Dosage: 3 DF-3TABS
     Route: 048
  4. AMPHOTERICIN B [Concomitant]
     Indication: INFECTION PROPHYLAXIS
     Route: 048
  5. ACYCLOVIR SODIUM [Concomitant]
     Indication: ANTIVIRAL PROPHYLAXIS
     Route: 048
  6. L-CARBOCISTEINE [Concomitant]
     Indication: UPPER RESPIRATORY TRACT INFLAMMATION
     Route: 048
     Dates: start: 20100209, end: 20100302
  7. CYPROHEPTADINE HCL [Concomitant]
     Indication: UPPER RESPIRATORY TRACT INFLAMMATION
     Route: 048
     Dates: start: 20100209, end: 20100302

REACTIONS (4)
  - C-REACTIVE PROTEIN INCREASED [None]
  - DIARRHOEA [None]
  - HAEMATOCHEZIA [None]
  - PYREXIA [None]
